FAERS Safety Report 19511289 (Version 1)
Quarter: 2021Q3

REPORT INFORMATION
  Report Type: Spontaneous
  Country: DE (occurrence: DE)
  Receive Date: 20210709
  Receipt Date: 20210709
  Transmission Date: 20211014
  Serious: Yes (Hospitalization, Other)
  Sender: FDA-Public Use
  Company Number: DE-BRISTOL-MYERS SQUIBB COMPANY-BMS-2021-063026

PATIENT
  Age: 62 Year
  Sex: Male

DRUGS (2)
  1. NIVOLUMAB [Suspect]
     Active Substance: NIVOLUMAB
     Indication: METASTATIC MALIGNANT MELANOMA
     Dosage: 1 UNITS NOS
     Route: 065
     Dates: start: 201802
  2. IPILIMUMAB [Suspect]
     Active Substance: IPILIMUMAB
     Indication: METASTATIC MALIGNANT MELANOMA
     Dosage: 3 UNITS NOS
     Route: 065
     Dates: start: 201802

REACTIONS (4)
  - Immune-mediated hypothyroidism [Unknown]
  - Immune-mediated myositis [Unknown]
  - Immune-mediated hepatitis [Unknown]
  - Facial paralysis [Unknown]

NARRATIVE: CASE EVENT DATE: 201803
